FAERS Safety Report 7824800-0 (Version None)
Quarter: 2011Q4

REPORT INFORMATION
  Report Type: 
  Country: None (occurrence: None)
  Receive Date: 20111019
  Receipt Date: 20110127
  Transmission Date: 20120403
  Serious: Yes (Hospitalization)
  Sender: FDA-Public Use
  Company Number: US-BRISTOL-MYERS SQUIBB COMPANY-15513997

PATIENT
  Age: 51 Year
  Sex: Female
  Weight: 77 kg

DRUGS (1)
  1. AVALIDE [Suspect]
     Dosage: 1 DF= 300/12.5MG. 1 HALF A PILL= 150/12.5MG EVERYDAY.

REACTIONS (1)
  - HYPOTENSION [None]
